FAERS Safety Report 13052849 (Version 1)
Quarter: 2016Q4

REPORT INFORMATION
  Report Type: Spontaneous
  Country: US (occurrence: US)
  Receive Date: 20161221
  Receipt Date: 20161221
  Transmission Date: 20170207
  Serious: No
  Sender: FDA-Public Use
  Company Number: US-AMGEN-USASP2016177972

PATIENT
  Age: 58 Year
  Sex: Female

DRUGS (1)
  1. ENBREL [Suspect]
     Active Substance: ETANERCEPT
     Indication: PSORIASIS
     Dosage: 50 MG, 2 TIMES/WK, 72-96 HRS APART
     Route: 058
     Dates: start: 201611, end: 201612

REACTIONS (3)
  - Headache [Unknown]
  - Urticaria [Unknown]
  - Nausea [Unknown]

NARRATIVE: CASE EVENT DATE: 2016
